FAERS Safety Report 23176055 (Version 4)
Quarter: 2024Q1

REPORT INFORMATION
  Report Type: Spontaneous
  Country: US (occurrence: US)
  Receive Date: 20231113
  Receipt Date: 20240307
  Transmission Date: 20240409
  Serious: No
  Sender: FDA-Public Use
  Company Number: US-BIOGEN-2023BI01234463

PATIENT
  Age: 44 Year
  Sex: Male
  Weight: 78 kg

DRUGS (2)
  1. QALSODY [Suspect]
     Active Substance: TOFERSEN
     Indication: Amyotrophic lateral sclerosis
     Route: 050
     Dates: start: 20231010
  2. QALSODY [Suspect]
     Active Substance: TOFERSEN
     Route: 050
     Dates: start: 20231010

REACTIONS (7)
  - Neurological procedural complication [Unknown]
  - Procedural pain [Unknown]
  - Procedural haemorrhage [Unknown]
  - Atrophy [Unknown]
  - Peripheral swelling [Unknown]
  - Procedural headache [Recovered/Resolved]
  - Post procedural complication [Unknown]

NARRATIVE: CASE EVENT DATE: 20231010
